FAERS Safety Report 15419904 (Version 3)
Quarter: 2018Q4

REPORT INFORMATION
  Report Type: Spontaneous
  Country: US (occurrence: US)
  Receive Date: 20180924
  Receipt Date: 20181018
  Transmission Date: 20190204
  Serious: Yes (Life-Threatening)
  Sender: FDA-Public Use
  Company Number: US-ARRAY-2018-04426

PATIENT

DRUGS (4)
  1. BRAFTOVI [Suspect]
     Active Substance: ENCORAFENIB
     Indication: MALIGNANT MELANOMA
     Dosage: 300 MG, QD
     Route: 048
     Dates: start: 20180804, end: 20190807
  2. MEKTOVI [Suspect]
     Active Substance: BINIMETINIB
     Dosage: 15 MG, UNK
     Route: 048
     Dates: start: 20180813, end: 20180905
  3. MEKTOVI [Suspect]
     Active Substance: BINIMETINIB
     Indication: MALIGNANT MELANOMA
     Dosage: 30 MG, BID
     Route: 048
     Dates: start: 20180804, end: 20180807
  4. BRAFTOVI [Suspect]
     Active Substance: ENCORAFENIB
     Dosage: 75 MG, UNK
     Dates: start: 20180813, end: 20180905

REACTIONS (14)
  - Hypokalaemia [Recovered/Resolved]
  - Diarrhoea [Unknown]
  - Chills [Recovered/Resolved]
  - Decreased appetite [Unknown]
  - Disease progression [Not Recovered/Not Resolved]
  - Acute kidney injury [Recovering/Resolving]
  - Tremor [Recovered/Resolved]
  - Pain [Unknown]
  - Hypercalcaemia [Unknown]
  - Hyperhidrosis [Unknown]
  - Dehydration [Unknown]
  - Asthenia [Unknown]
  - Anaemia [Unknown]
  - Pyrexia [Recovered/Resolved]

NARRATIVE: CASE EVENT DATE: 20180807
